FAERS Safety Report 7162799-3 (Version None)
Quarter: 2010Q4

REPORT INFORMATION
  Report Type: 
  Country: None (occurrence: None)
  Receive Date: 20101201
  Receipt Date: 20101115
  Transmission Date: 20110411
  Serious: Yes (Hospitalization, Other)
  Sender: FDA-Public Use
  Company Number: 201023198NA

PATIENT
  Age: 20 Year
  Sex: Female
  Weight: 67.586 kg

DRUGS (4)
  1. YASMIN [Suspect]
     Indication: ACNE
     Dosage: ORAL
     Route: 048
     Dates: start: 20051201, end: 20080601
  2. YASMIN [Suspect]
     Indication: CONTRACEPTION
     Dosage: ORAL
     Route: 048
     Dates: start: 20051201, end: 20080601
  3. YASMIN [Suspect]
     Indication: PREMENSTRUAL SYNDROME
     Dosage: ORAL
     Route: 048
     Dates: start: 20051201, end: 20080601
  4. ADDERALL 10 [Concomitant]

REACTIONS (6)
  - ALOPECIA [None]
  - DEEP VEIN THROMBOSIS [None]
  - JOINT CREPITATION [None]
  - PULMONARY EMBOLISM [None]
  - RAYNAUD'S PHENOMENON [None]
  - THORACIC OUTLET SYNDROME [None]
